FAERS Safety Report 18315083 (Version 1)
Quarter: 2020Q3

REPORT INFORMATION
  Report Type: Spontaneous
  Country: DE (occurrence: DE)
  Receive Date: 20200926
  Receipt Date: 20200926
  Transmission Date: 20201103
  Serious: Yes (Hospitalization, Other)
  Sender: FDA-Public Use
  Company Number: DE-TEVA-2020-DE-1830685

PATIENT
  Age: 85 Year
  Sex: Male

DRUGS (11)
  1. PANTOPRAZOL [Concomitant]
     Active Substance: PANTOPRAZOLE SODIUM
     Dosage: 20 MILLIGRAM DAILY; 20 MG, 1?0?0?0
     Route: 048
  2. CANDESARTAN. [Concomitant]
     Active Substance: CANDESARTAN
     Dosage: 8 MG, 0.5?0?0.5?0
     Route: 048
  3. PHENPROCOUMON [Suspect]
     Active Substance: PHENPROCOUMON
     Dosage: 3 MG, BY VALUE
     Route: 048
  4. TAMSULOSIN [Concomitant]
     Active Substance: TAMSULOSIN
     Dosage: .4 MILLIGRAM DAILY; 0.4 MG, 0?0?1?0
     Route: 048
  5. AMLODIPINE [Concomitant]
     Active Substance: AMLODIPINE BESYLATE
     Dosage: 5 MILLIGRAM DAILY; 5 MG, 1?0?0?0
     Route: 048
  6. SIMVASTATIN. [Concomitant]
     Active Substance: SIMVASTATIN
     Dosage: 20 MILLIGRAM DAILY; 20 MG, 0?0?1?0
     Route: 048
  7. INSULIN GLARGINE [Concomitant]
     Active Substance: INSULIN GLARGINE
     Dosage: 100 IU, ACCORDING TO PLAN, AMPOULES
     Route: 058
  8. INSULIN HUMAN [Concomitant]
     Active Substance: INSULIN HUMAN
     Dosage: 100 IU, BY VALUE, AMPOULES
     Route: 058
  9. TORASEMID [Suspect]
     Active Substance: TORSEMIDE
     Dosage: 20 MILLIGRAM DAILY; 20 MG, 1?0?0?0
     Route: 048
  10. EISEN(II)IODAT [Concomitant]
     Dosage: 40 MILLIGRAM DAILY; 40 MG, 0?1?0?0
     Route: 048
  11. LEVOTHYROXIN NATRIUM [Concomitant]
     Dosage: 100 MICROGRAM DAILY; 100 UG, 1?0?0?0
     Route: 048

REACTIONS (6)
  - Oedema peripheral [Unknown]
  - Angina pectoris [Unknown]
  - Haematuria [Unknown]
  - Dyspnoea [Unknown]
  - General physical health deterioration [Unknown]
  - Anaemia [Unknown]
